FAERS Safety Report 15115093 (Version 1)
Quarter: 2018Q3

REPORT INFORMATION
  Report Type: Spontaneous
  Country: CN (occurrence: CN)
  Receive Date: 20180706
  Receipt Date: 20180706
  Transmission Date: 20181010
  Serious: Yes (Other)
  Sender: FDA-Public Use
  Company Number: CN-PFIZER INC-2018268956

PATIENT
  Age: 98 Year
  Sex: Male
  Weight: 52 kg

DRUGS (4)
  1. LINEZOLID. [Suspect]
     Active Substance: LINEZOLID
     Indication: LUNG INFECTION
     Dosage: 0.6 G, 2X/DAY
     Dates: start: 20180503, end: 20180508
  2. MEROPENEM. [Suspect]
     Active Substance: MEROPENEM
     Indication: LUNG INFECTION
     Dosage: 100 ML, 2X/DAY
     Dates: start: 20180502, end: 20180507
  3. SULPERAZON [Suspect]
     Active Substance: CEFOPERAZONE SODIUM\SULBACTAM SODIUM
     Indication: LUNG INFECTION
     Dosage: 2 G, 2X/DAY
     Route: 041
     Dates: start: 20180507, end: 20180516
  4. TIGECYCLINE. [Suspect]
     Active Substance: TIGECYCLINE
     Indication: LUNG INFECTION
     Dosage: 100 MG, 2X/DAY
     Route: 041
     Dates: start: 20180508, end: 20180516

REACTIONS (1)
  - Coagulation time prolonged [Recovered/Resolved]

NARRATIVE: CASE EVENT DATE: 20180512
